FAERS Safety Report 21901791 (Version 3)
Quarter: 2023Q1

REPORT INFORMATION
  Report Type: Spontaneous
  Country: FR (occurrence: FR)
  Receive Date: 20230124
  Receipt Date: 20230315
  Transmission Date: 20230418
  Serious: Yes (Life-Threatening, Hospitalization, Other)
  Sender: FDA-Public Use
  Company Number: None

PATIENT
  Age: 56 Year
  Sex: Female

DRUGS (5)
  1. FLUOXETINE [Interacting]
     Active Substance: FLUOXETINE HYDROCHLORIDE
     Indication: Product used for unknown indication
     Dosage: 40 MILLIGRAM, QD, (20 MG IN THE MORNING AND 20 MG AT NOON)
     Route: 065
  2. OLANZAPINE [Interacting]
     Active Substance: OLANZAPINE
     Indication: Product used for unknown indication
     Dosage: 20 MILLIGRAM (PER DAY) (IN THE EVENING )
     Route: 065
  3. ACETAMINOPHEN [Interacting]
     Active Substance: ACETAMINOPHEN
     Indication: Product used for unknown indication
     Dosage: 138 DOSAGE FORM (1 TOTAL) (ACETAMINOPHEN TOTAL DOSE OF 138 G) (OVERDOSE )
     Route: 048
  4. BROMAZEPAM [Interacting]
     Active Substance: BROMAZEPAM
     Indication: Product used for unknown indication
     Dosage: 6 MILLIGRAM (PER DAY) (IN THE EVENING)
     Route: 065
  5. BROMAZEPAM [Interacting]
     Active Substance: BROMAZEPAM
     Dosage: 3 MILLIGRAM (EVERY 6 HOURS)  (FOUR TIMES DAILY)
     Route: 065

REACTIONS (9)
  - Renal tubular necrosis [None]
  - Bezoar [None]
  - Metabolic acidosis [None]
  - Hepatic failure [None]
  - Renal failure [None]
  - Toxicity to various agents [None]
  - Hepatitis [None]
  - Intentional overdose [None]
  - Drug interaction [None]
